FAERS Safety Report 17362076 (Version 1)
Quarter: 2020Q1

REPORT INFORMATION
  Report Type: Spontaneous
  Country: BR (occurrence: BR)
  Receive Date: 20200203
  Receipt Date: 20200203
  Transmission Date: 20200409
  Serious: Yes (Other)
  Sender: FDA-Public Use
  Company Number: BR-PFIZER INC-2020043195

PATIENT
  Age: 79 Year
  Sex: Female

DRUGS (2)
  1. XELJANZ [Suspect]
     Active Substance: TOFACITINIB CITRATE
     Indication: RHEUMATOID ARTHRITIS
     Dosage: 2 TABLETS A DAY
     Dates: start: 2019
  2. XELJANZ [Suspect]
     Active Substance: TOFACITINIB CITRATE
     Indication: ANKYLOSING SPONDYLITIS
     Dosage: 2 TABLETS A DAY
     Dates: end: 20191208

REACTIONS (3)
  - Feeling abnormal [Not Recovered/Not Resolved]
  - Gait inability [Not Recovered/Not Resolved]
  - Paraplegia [Not Recovered/Not Resolved]
